FAERS Safety Report 12272868 (Version 2)
Quarter: 2016Q3

REPORT INFORMATION
  Report Type: Report from Study
  Country: DE (occurrence: DE)
  Receive Date: 20160415
  Receipt Date: 20160707
  Transmission Date: 20161109
  Serious: Yes (Other)
  Sender: FDA-Public Use
  Company Number: DE-BRISTOL-MYERS SQUIBB COMPANY-BMS-2016-027137

PATIENT
  Age: 78 Year
  Sex: Female
  Weight: 71 kg

DRUGS (2)
  1. APIXABAN [Suspect]
     Active Substance: APIXABAN
     Indication: CEREBROVASCULAR ACCIDENT PROPHYLAXIS
     Dosage: 2.5 MG, BID
     Route: 048
     Dates: start: 20140518
  2. APIXABAN [Suspect]
     Active Substance: APIXABAN
     Dosage: 2.5 MG, BID
     Route: 048
     Dates: start: 20140518

REACTIONS (4)
  - Tachyarrhythmia [Unknown]
  - Cardiac pacemaker insertion [Unknown]
  - Syncope [Unknown]
  - Bradycardia [Unknown]

NARRATIVE: CASE EVENT DATE: 20160129
